FAERS Safety Report 10050869 (Version 1)
Quarter: 2014Q2

REPORT INFORMATION
  Report Type: Spontaneous
  Country: US (occurrence: US)
  Receive Date: 20140401
  Receipt Date: 20140401
  Transmission Date: 20141212
  Serious: No
  Sender: FDA-Public Use
  Company Number: US-PFIZER INC-2014087309

PATIENT
  Age: 47 Year
  Sex: Male

DRUGS (2)
  1. SUTENT [Suspect]
     Dosage: 37.5 MG, DAILY
  2. ZOFRAN [Concomitant]
     Indication: NAUSEA
     Dosage: UNK

REACTIONS (5)
  - Nausea [Unknown]
  - Retching [Unknown]
  - Fatigue [Unknown]
  - Constipation [Unknown]
  - Chromaturia [Unknown]
